FAERS Safety Report 9101555 (Version 1)
Quarter: 2013Q1

REPORT INFORMATION
  Report Type: Report from Study
  Country: US (occurrence: US)
  Receive Date: 20130218
  Receipt Date: 20130218
  Transmission Date: 20140127
  Serious: No
  Sender: FDA-Public Use
  Company Number: US-ABBOTT-12P-163-0925209-00

PATIENT
  Sex: Male

DRUGS (6)
  1. SIMCOR 500MG/40MG [Suspect]
     Indication: HIGH DENSITY LIPOPROTEIN DECREASED
     Dosage: 500/40MG AT BED TIME
     Dates: start: 20120412
  2. SIMCOR 500MG/40MG [Suspect]
     Indication: BLOOD TRIGLYCERIDES INCREASED
  3. SIMCOR 500MG/40MG [Suspect]
     Indication: BLOOD CHOLESTEROL INCREASED
  4. GINGKO BILOBA EXTR [Concomitant]
     Indication: PRODUCT USED FOR UNKNOWN INDICATION
  5. METOPROLOL [Concomitant]
     Indication: PRODUCT USED FOR UNKNOWN INDICATION
  6. ASPIRIN [Concomitant]
     Indication: PRODUCT USED FOR UNKNOWN INDICATION
     Dosage: 20 MINUTES BEFORE SIMCOR DOSE

REACTIONS (3)
  - Pruritus [Not Recovered/Not Resolved]
  - Erythema [Not Recovered/Not Resolved]
  - Paraesthesia [Not Recovered/Not Resolved]
